FAERS Safety Report 8566534-3 (Version None)
Quarter: 2012Q3

REPORT INFORMATION
  Report Type: 
  Country: None (occurrence: None)
  Receive Date: 20120803
  Receipt Date: 20120104
  Transmission Date: 20120928
  Serious: No
  Sender: FDA-Public Use
  Company Number: US-ABBOTT-12P-163-0888995-00

PATIENT
  Sex: Female
  Weight: 77.18 kg

DRUGS (1)
  1. NIASPAN [Suspect]
     Indication: BLOOD CHOLESTEROL ABNORMAL
     Dates: start: 20111228, end: 20111229

REACTIONS (3)
  - PARAESTHESIA [None]
  - BURNING SENSATION [None]
  - FLUSHING [None]
